FAERS Safety Report 7749735-3 (Version None)
Quarter: 2011Q3

REPORT INFORMATION
  Report Type: 
  Country: None (occurrence: None)
  Receive Date: 20110914
  Receipt Date: 20110905
  Transmission Date: 20111222
  Serious: Yes (Hospitalization, Other)
  Sender: FDA-Public Use
  Company Number: BR-BRISTOL-MYERS SQUIBB COMPANY-16041246

PATIENT
  Age: 54 Year
  Sex: Female
  Weight: 70 kg

DRUGS (9)
  1. BROMOPRIDE [Suspect]
     Dosage: TABS. APR11 8 HRS APART
     Route: 048
  2. DIPIRONE [Suspect]
     Dosage: 500MG/ML. 40 DROPS 4HRS APART
     Route: 048
  3. LOPERAMIDE [Suspect]
     Dosage: TABS DURATION:24MAR-02APR PARTIAL DATE NO YEAR APR11 6HRS APART
     Route: 048
  4. NORFLOXACIN [Suspect]
     Dosage: TABS DURATION:24MAR-02APR PARTIAL DATE NO YEAR APR11 12HRS APART
     Route: 048
  5. LISODREN TABS 500 MG [Suspect]
     Indication: RENAL CANCER
     Dosage: 1G: DEC10 8HRS APART, MAR11 12HRS APART, 8HRS APART APR11 12HRS APART
     Route: 048
     Dates: start: 20100429
  6. OMEPRAZOLE [Suspect]
     Dosage: TABS FASTING MAR11,APR11-20MG.
     Route: 048
  7. PREDNISONE [Suspect]
     Dosage: MAR 11 12HRS APART, APR11 12HRS APART
     Route: 048
  8. SERTRALINE HYDROCHLORIDE [Suspect]
     Dosage: IN NIGHT. MAR11 50MG. TABS
     Route: 048
  9. FLUDROCORTISONE ACETATE [Suspect]
     Dosage: TABS, IN MORNING
     Route: 048

REACTIONS (14)
  - ASTHENIA [None]
  - HYPOKALAEMIA [None]
  - HYPOTHERMIA [None]
  - HYPONATRAEMIA [None]
  - THROMBOCYTOPENIA [None]
  - DIZZINESS [None]
  - VOMITING [None]
  - DYSARTHRIA [None]
  - NAUSEA [None]
  - LETHARGY [None]
  - HYPOTENSION [None]
  - DEHYDRATION [None]
  - DIARRHOEA [None]
  - DEPRESSION SUICIDAL [None]
